FAERS Safety Report 4850803-4 (Version None)
Quarter: 2005Q4

REPORT INFORMATION
  Report Type: 
  Country: None (occurrence: None)
  Receive Date: 20051208
  Receipt Date: 20051125
  Transmission Date: 20060501
  Serious: Yes (Hospitalization)
  Sender: FDA-Public Use
  Company Number: 2005162184

PATIENT
  Sex: 0

DRUGS (1)
  1. GLUCOTROL XL [Suspect]
     Indication: ILL-DEFINED DISORDER
     Dosage: 20 MG (10 MG, 2 IN 1D)

REACTIONS (1)
  - UNEVALUABLE EVENT [None]
